FAERS Safety Report 9605260 (Version 1)
Quarter: 2013Q4

REPORT INFORMATION
  Report Type: Spontaneous
  Country: GB (occurrence: GB)
  Receive Date: 20131008
  Receipt Date: 20131008
  Transmission Date: 20140711
  Serious: Yes (Other)
  Sender: FDA-Public Use
  Company Number: GB-GLAXOSMITHKLINE-B0926599A

PATIENT
  Age: 42 Year
  Sex: Female

DRUGS (1)
  1. ACICLOVIR [Suspect]
     Indication: ORAL HERPES
     Route: 048
     Dates: start: 20130910, end: 20130914

REACTIONS (1)
  - Palpitations [Recovering/Resolving]
